FAERS Safety Report 18895625 (Version 1)
Quarter: 2021Q1

REPORT INFORMATION
  Report Type: Spontaneous
  Country: GB (occurrence: GB)
  Receive Date: 20210216
  Receipt Date: 20210216
  Transmission Date: 20210420
  Serious: Yes (Other)
  Sender: FDA-Public Use
  Company Number: GB-JNJFOC-20210216617

PATIENT
  Age: 73 Year
  Sex: Female
  Weight: 51 kg

DRUGS (3)
  1. CORTISOL [CORTISONE ACETATE] [Concomitant]
     Indication: PRODUCT USED FOR UNKNOWN INDICATION
     Route: 065
  2. PARACETAMOL [Suspect]
     Active Substance: ACETAMINOPHEN
     Indication: PRODUCT USED FOR UNKNOWN INDICATION
     Route: 065
  3. ASTRAZENECA COVID?19 VACCINE [Suspect]
     Active Substance: AZD-1222
     Indication: PRODUCT USED FOR UNKNOWN INDICATION
     Route: 065
     Dates: start: 20210204

REACTIONS (7)
  - Stress [Recovered/Resolved]
  - Chills [Unknown]
  - Headache [Recovered/Resolved]
  - Pyrexia [Recovered/Resolved]
  - Anxiety [Unknown]
  - Eye pain [Recovered/Resolved]
  - Pyrexia [Unknown]

NARRATIVE: CASE EVENT DATE: 20210204
